FAERS Safety Report 11892719 (Version 2)
Quarter: 2016Q4

REPORT INFORMATION
  Report Type: Spontaneous
  Country: US (occurrence: US)
  Receive Date: 20160106
  Receipt Date: 20161110
  Transmission Date: 20170206
  Serious: No
  Sender: FDA-Public Use
  Company Number: US-PFIZER INC-2015436836

PATIENT
  Sex: Male

DRUGS (3)
  1. SODIUM CHLORIDE. [Suspect]
     Active Substance: SODIUM CHLORIDE
     Indication: OSTEOMYELITIS
     Dosage: 100 ML, UNK
     Route: 042
     Dates: start: 20151103
  2. CEFTIN [Suspect]
     Active Substance: CEFUROXIME AXETIL
     Indication: OSTEOMYELITIS
     Dosage: 2 G, UNK
     Dates: start: 20151103
  3. VANCOMYCIN HCL [Suspect]
     Active Substance: VANCOMYCIN HYDROCHLORIDE
     Indication: OSTEOMYELITIS
     Dosage: 1 G
     Route: 042
     Dates: start: 20151103

REACTIONS (3)
  - Rash macular [Unknown]
  - Rash pruritic [Unknown]
  - Red man syndrome [Unknown]

NARRATIVE: CASE EVENT DATE: 20151119
